FAERS Safety Report 10220628 (Version 1)
Quarter: 2014Q2

REPORT INFORMATION
  Report Type: Spontaneous
  Country: US (occurrence: None)
  Receive Date: 20140605
  Receipt Date: 20140605
  Transmission Date: 20141212
  Serious: Yes (Disabling)
  Sender: FDA-Public Use
  Company Number: None

PATIENT
  Age: 50 Year
  Sex: Female
  Weight: 90.27 kg

DRUGS (2)
  1. DULOXETINE [Suspect]
     Indication: DEPRESSION
     Route: 048
     Dates: start: 20140115, end: 20140515
  2. DULOXETINE [Suspect]
     Indication: GENERALISED ANXIETY DISORDER
     Route: 048
     Dates: start: 20140115, end: 20140515

REACTIONS (4)
  - Depression [None]
  - Anxiety [None]
  - Disease recurrence [None]
  - Product substitution issue [None]
